FAERS Safety Report 9633030 (Version 1)
Quarter: 2013Q4

REPORT INFORMATION
  Report Type: Spontaneous
  Country: NL (occurrence: NL)
  Receive Date: 20131018
  Receipt Date: 20131018
  Transmission Date: 20140711
  Serious: Yes (Other)
  Sender: FDA-Public Use
  Company Number: NL-ASTRAZENECA-2013SE63290

PATIENT
  Age: 65 Year
  Sex: Male
  Weight: 98 kg

DRUGS (7)
  1. OMEPRAZOL [Suspect]
     Route: 048
  2. SPIRONOLACTON [Concomitant]
     Route: 048
  3. COLECALCIFEROL [Concomitant]
     Dosage: 50.000 IE/ML, 1 ML EVERY FOUR WEEKS
     Route: 048
  4. FUROSEMIDE PCH [Concomitant]
     Route: 048
  5. METOPROLOLSUCCINAAT [Concomitant]
     Route: 048
  6. ACETYLSALICYLZUUR CARDIO [Concomitant]
     Route: 048
  7. RAMIPRIL [Concomitant]
     Route: 048

REACTIONS (2)
  - Ventricular tachycardia [Unknown]
  - Hypomagnesaemia [Recovered/Resolved]
